FAERS Safety Report 23273856 (Version 1)
Quarter: 2023Q4

REPORT INFORMATION
  Report Type: Spontaneous
  Country: US (occurrence: US)
  Receive Date: 20231207
  Receipt Date: 20231207
  Transmission Date: 20240110
  Serious: Yes (Hospitalization)
  Sender: FDA-Public Use
  Company Number: US-BEIGENE-BGN-2023-014396

PATIENT

DRUGS (1)
  1. BRUKINSA [Suspect]
     Active Substance: ZANUBRUTINIB
     Indication: Splenic marginal zone lymphoma
     Dosage: UNK
     Dates: start: 20230719

REACTIONS (1)
  - Mucormycosis [Unknown]

NARRATIVE: CASE EVENT DATE: 20231129
